FAERS Safety Report 13975246 (Version 1)
Quarter: 2017Q3

REPORT INFORMATION
  Report Type: Spontaneous
  Country: GB (occurrence: GB)
  Receive Date: 20170915
  Receipt Date: 20170915
  Transmission Date: 20171128
  Serious: Yes (Death, Other)
  Sender: FDA-Public Use
  Company Number: GB-SUN PHARMACEUTICAL INDUSTRIES LTD-2017RR-149812

PATIENT
  Age: 44 Year
  Sex: Female

DRUGS (4)
  1. PREGABALIN. [Suspect]
     Active Substance: PREGABALIN
     Indication: PRODUCT USED FOR UNKNOWN INDICATION
     Dosage: UNK
     Route: 065
  2. ZOPICLONE [Suspect]
     Active Substance: ZOPICLONE
     Indication: SLEEP DISORDER
     Dosage: UNK
     Route: 065
  3. COCODAMOL [Suspect]
     Active Substance: ACETAMINOPHEN\CODEINE PHOSPHATE
     Indication: PAIN
     Dosage: 28 TABLET, DAILY
     Route: 065
  4. MORPHINE [Suspect]
     Active Substance: MORPHINE
     Indication: PRODUCT USED FOR UNKNOWN INDICATION
     Dosage: UNK
     Route: 065

REACTIONS (9)
  - Eye pain [Unknown]
  - Vision blurred [Unknown]
  - Prescription drug used without a prescription [Fatal]
  - Dysarthria [Unknown]
  - Drug abuse [Unknown]
  - Accidental overdose [Fatal]
  - Toxicity to various agents [Fatal]
  - Drug diversion [Unknown]
  - Gait disturbance [Unknown]

NARRATIVE: CASE EVENT DATE: 20161014
